FAERS Safety Report 23379616 (Version 5)
Quarter: 2025Q4

REPORT INFORMATION
  Report Type: Report from Study
  Country: US (occurrence: US)
  Receive Date: 20240108
  Receipt Date: 20251215
  Transmission Date: 20260117
  Serious: Yes (Hospitalization, Other)
  Sender: TAKEDA
  Company Number: US-TAKEDA-US201921028

PATIENT
  Age: 63 Year
  Sex: Female

DRUGS (4)
  1. HUMAN IMMUNOGLOBULIN G [Suspect]
     Active Substance: HUMAN IMMUNOGLOBULIN G
     Indication: Primary immunodeficiency syndrome
     Dosage: 10 GRAM, 1/WEEK
  2. HUMAN IMMUNOGLOBULIN G [Suspect]
     Active Substance: HUMAN IMMUNOGLOBULIN G
     Indication: Immunodeficiency common variable
     Dosage: UNK
  3. TYLENOL [Concomitant]
     Active Substance: ACETAMINOPHEN
     Indication: Pain
     Dosage: UNK
  4. BENADRYL [Concomitant]
     Active Substance: DIPHENHYDRAMINE HYDROCHLORIDE
     Indication: Pain
     Dosage: UNK

REACTIONS (15)
  - Neoplasm malignant [Unknown]
  - Cerebral haemorrhage [Unknown]
  - Infection [Recovered/Resolved]
  - Gallbladder polyp [Unknown]
  - Vitreous disorder [Unknown]
  - Animal bite [Unknown]
  - COVID-19 [Unknown]
  - Chronic obstructive pulmonary disease [Unknown]
  - Asthma [Unknown]
  - Blood pressure increased [Unknown]
  - Urticaria [Not Recovered/Not Resolved]
  - Peripheral swelling [Unknown]
  - Superficial siderosis of central nervous system [Unknown]
  - Hiatus hernia [Unknown]
  - Influenza [Unknown]

NARRATIVE: CASE EVENT DATE: 20190722
